APPROVED DRUG PRODUCT: PHENTERMINE HYDROCHLORIDE
Active Ingredient: PHENTERMINE HYDROCHLORIDE
Strength: 30MG
Dosage Form/Route: CAPSULE;ORAL
Application: A086945 | Product #001 | TE Code: AA
Applicant: SANDOZ INC
Approved: Jul 20, 1983 | RLD: Yes | RS: Yes | Type: RX